FAERS Safety Report 12876220 (Version 2)
Quarter: 2016Q4

REPORT INFORMATION
  Report Type: Spontaneous
  Country: JP (occurrence: JP)
  Receive Date: 20161024
  Receipt Date: 20161108
  Transmission Date: 20170207
  Serious: Yes (Hospitalization, Other)
  Sender: FDA-Public Use
  Company Number: JP-BAYER-2016-198392

PATIENT
  Age: 25 Year
  Sex: Male

DRUGS (1)
  1. ACETYLSALICYLIC ACID({=100 MG) [Suspect]
     Active Substance: ASPIRIN
     Indication: SUICIDE ATTEMPT
     Dosage: 30000 MG, QD
     Route: 048

REACTIONS (4)
  - Cerebral haemorrhage [None]
  - Intentional overdose [None]
  - Suicide attempt [None]
  - Toxicity to various agents [None]
